FAERS Safety Report 9195984 (Version 1)
Quarter: 2013Q1

REPORT INFORMATION
  Report Type: Spontaneous
  Country: BR (occurrence: BR)
  Receive Date: 20130328
  Receipt Date: 20130328
  Transmission Date: 20140127
  Serious: Yes (Hospitalization, Other)
  Sender: FDA-Public Use
  Company Number: PHHY2012BR088326

PATIENT
  Sex: Male
  Weight: 54 kg

DRUGS (4)
  1. EXELON [Suspect]
     Indication: DELIRIUM
     Dosage: 1 DF, BID
     Route: 048
  2. PHENYTOIN [Concomitant]
     Indication: CEREBRAL ISCHAEMIA
     Dosage: 1 DF, BID
     Route: 048
  3. DOXAZOSIN [Concomitant]
     Indication: DYSURIA
     Dosage: 1 DF, QD
     Route: 048
  4. RIVOTRIL [Concomitant]
     Indication: INSOMNIA
     Dosage: 9 DRP, UNK (AT NIGHT, BEFOR USING EXELON)
     Route: 048

REACTIONS (12)
  - Gastrointestinal carcinoma [Unknown]
  - Dyspepsia [Not Recovered/Not Resolved]
  - Gastrointestinal pain [Not Recovered/Not Resolved]
  - Pneumonia [Recovered/Resolved]
  - Paranoia [Recovering/Resolving]
  - Delirium [Not Recovered/Not Resolved]
  - Hallucination, auditory [Recovering/Resolving]
  - Depression [Recovering/Resolving]
  - Insomnia [Recovering/Resolving]
  - Condition aggravated [Recovering/Resolving]
  - Amnesia [Not Recovered/Not Resolved]
  - Feeding disorder [Not Recovered/Not Resolved]
